FAERS Safety Report 15695211 (Version 1)
Quarter: 2018Q4

REPORT INFORMATION
  Report Type: Spontaneous
  Country: US (occurrence: US)
  Receive Date: 20181206
  Receipt Date: 20181206
  Transmission Date: 20190205
  Serious: Yes (Other)
  Sender: FDA-Public Use
  Company Number: US-BAYER-2018-221478

PATIENT
  Age: 14 Year
  Sex: Female

DRUGS (2)
  1. LENVATINIB [Suspect]
     Active Substance: LENVATINIB
     Dosage: 20MG DAILY (14MG/M2/ DAY) REPEATED IN FOUR-WEEK CYCLES
     Route: 048
  2. SORAFENIB (RAF KINASE INHIBITOR) [Suspect]
     Active Substance: SORAFENIB
     Indication: PAPILLARY THYROID CANCER
     Dosage: 200 MG/M2, BID
     Route: 048

REACTIONS (3)
  - Metastases to lung [None]
  - Respiratory distress [None]
  - Hypoxia [None]
